FAERS Safety Report 11881855 (Version 3)
Quarter: 2017Q1

REPORT INFORMATION
  Report Type: Spontaneous
  Country: US (occurrence: US)
  Receive Date: 20151231
  Receipt Date: 20170123
  Transmission Date: 20170428
  Serious: Yes (Life-Threatening, Hospitalization)
  Sender: FDA-Public Use
  Company Number: US-BAYER-2015-495310

PATIENT
  Age: 32 Year
  Sex: Female
  Weight: 99.77 kg

DRUGS (5)
  1. AMOXICILLIN. [Concomitant]
     Active Substance: AMOXICILLIN
  2. PROZAC [Concomitant]
     Active Substance: FLUOXETINE HYDROCHLORIDE
  3. FLUOXETINE [Concomitant]
     Active Substance: FLUOXETINE HYDROCHLORIDE
     Indication: PERINATAL DEPRESSION
  4. FLUOXETINE [Concomitant]
     Active Substance: FLUOXETINE HYDROCHLORIDE
     Indication: DEPRESSION
  5. MIRENA [Suspect]
     Active Substance: LEVONORGESTREL
     Indication: CONTRACEPTION
     Dosage: 20 MCG/24HR, CONT
     Route: 015
     Dates: start: 20140115, end: 20140508

REACTIONS (8)
  - Pelvic pain [None]
  - Appendicitis [None]
  - Uterine perforation [None]
  - Abdominal pain upper [None]
  - Procedural pain [None]
  - Vomiting [None]
  - Device use issue [None]
  - Abdominal pain lower [None]

NARRATIVE: CASE EVENT DATE: 20140115
